FAERS Safety Report 17017994 (Version 2)
Quarter: 2019Q4

REPORT INFORMATION
  Report Type: Spontaneous
  Country: US (occurrence: US)
  Receive Date: 20191111
  Receipt Date: 20191212
  Transmission Date: 20200122
  Serious: Yes (Other)
  Sender: FDA-Public Use
  Company Number: US-NAPPMUNDI-USA-2019-0149030

PATIENT
  Sex: Female
  Weight: 56.69 kg

DRUGS (1)
  1. OXYCODONE HYDROCHLORIDE (SIMILAR TO NDA 22-272) [Suspect]
     Active Substance: OXYCODONE HYDROCHLORIDE
     Indication: PAIN
     Route: 048

REACTIONS (4)
  - Amnesia [Unknown]
  - Inadequate analgesia [Unknown]
  - Surgery [Unknown]
  - Unevaluable event [Unknown]
